FAERS Safety Report 19665376 (Version 1)
Quarter: 2021Q3

REPORT INFORMATION
  Report Type: Spontaneous
  Country: GB (occurrence: GB)
  Receive Date: 20210805
  Receipt Date: 20210805
  Transmission Date: 20211014
  Serious: Yes (Hospitalization, Other)
  Sender: FDA-Public Use
  Company Number: GB-SA-2021SA248433

PATIENT
  Age: 63 Year
  Sex: Female

DRUGS (29)
  1. PERTUZUMAB. [Suspect]
     Active Substance: PERTUZUMAB
     Dosage: 420 MG, Q3W
     Route: 042
     Dates: start: 20170915
  2. ALENDRONIC ACID [Concomitant]
     Active Substance: ALENDRONIC ACID
     Dosage: 70 MG, QW
     Route: 048
  3. DENOSUMAB [Concomitant]
     Active Substance: DENOSUMAB
     Indication: PROPHYLAXIS
     Dosage: 120 MG, QM
     Route: 058
     Dates: start: 20180706
  4. E45 [Concomitant]
     Active Substance: LANOLIN\LIGHT MINERAL OIL\PARAFFIN
     Indication: RASH PRURITIC
     Dosage: 1 OTHER
     Route: 061
     Dates: start: 20180810
  5. MENTHOL. [Concomitant]
     Active Substance: MENTHOL
     Indication: RASH PRURITIC
     Dosage: 1 OTHER CREAM
     Route: 061
     Dates: start: 20180810
  6. PIRITON [Concomitant]
     Active Substance: CHLORPHENIRAMINE MALEATE
     Indication: RASH
     Route: 048
     Dates: start: 20180504
  7. SALBUTAMOL [Concomitant]
     Active Substance: ALBUTEROL
     Dosage: 2 PUFF
  8. TINZAPARIN [Concomitant]
     Active Substance: TINZAPARIN
     Indication: PLEURITIC PAIN
     Dosage: 4500 IU, QD
     Route: 058
     Dates: start: 20190117
  9. AMLODIPINE [Concomitant]
     Active Substance: AMLODIPINE BESYLATE
     Indication: HYPERTENSION
     Dosage: 5 MG, QD
     Route: 048
  10. CYCLIZINE [Concomitant]
     Active Substance: CYCLIZINE
     Indication: NAUSEA
     Dosage: 50 MG
     Route: 048
     Dates: start: 20190718
  11. IBUPROFEN. [Concomitant]
     Active Substance: IBUPROFEN
     Indication: PAIN
     Dosage: UNK
     Route: 048
     Dates: start: 20190718
  12. DOCETAXEL. [Suspect]
     Active Substance: DOCETAXEL
     Dosage: 96 MG, Q3W
     Route: 042
     Dates: start: 20171208, end: 20171208
  13. ADCAL D3 [Concomitant]
     Active Substance: CALCIUM CARBONATE\CHOLECALCIFEROL
     Dosage: UNK UNK, QD
     Route: 048
     Dates: start: 20170825
  14. LANSOPRAZOLE. [Concomitant]
     Active Substance: LANSOPRAZOLE
     Dosage: 30 MG
     Route: 048
  15. TRASTUZUMAB. [Suspect]
     Active Substance: TRASTUZUMAB
     Indication: BREAST CANCER
     Dosage: 630 MG, Q3W
     Route: 042
     Dates: start: 20170825, end: 20170825
  16. MYROXYLON BALSAMUM [Concomitant]
     Indication: HAEMORRHOIDS
     Dosage: 1 OTHER
     Route: 061
     Dates: start: 20180504
  17. RAMIPRIL. [Concomitant]
     Active Substance: RAMIPRIL
     Indication: HYPERTENSION
     Dosage: 2.5 MG, QD
     Route: 048
     Dates: start: 20180504
  18. DOCETAXEL. [Suspect]
     Active Substance: DOCETAXEL
     Dosage: 96 MG, Q3W
     Route: 042
     Dates: start: 20170915, end: 20170915
  19. DOCETAXEL. [Suspect]
     Active Substance: DOCETAXEL
     Dosage: 108 MG, Q3W
     Route: 042
     Dates: start: 20170915, end: 20170915
  20. EXEMESTANE. [Suspect]
     Active Substance: EXEMESTANE
     Indication: BREAST CANCER
     Dosage: 25 MG, QD
     Route: 048
     Dates: start: 20180209
  21. TRASTUZUMAB. [Suspect]
     Active Substance: TRASTUZUMAB
     Dosage: 504 MG, Q3W
     Route: 042
     Dates: start: 20180209
  22. LOSARTAN. [Concomitant]
     Active Substance: LOSARTAN
     Indication: HYPERTENSION
     Dosage: 50 MG, QD
     Route: 048
  23. PERTUZUMAB. [Suspect]
     Active Substance: PERTUZUMAB
     Indication: BREAST CANCER
     Dosage: 840 MG, Q3W
     Route: 042
     Dates: start: 20170824, end: 20170824
  24. BISMUTH. [Concomitant]
     Active Substance: BISMUTH
     Indication: HAEMORRHOIDS
     Dosage: 1 OTHER
     Route: 061
     Dates: start: 20180504
  25. NITROFURANTOIN. [Concomitant]
     Active Substance: NITROFURANTOIN
     Indication: CONFUSIONAL STATE
     Dosage: 50 MG
     Route: 048
     Dates: start: 20210107, end: 20210112
  26. SERTRALINE [Concomitant]
     Active Substance: SERTRALINE HYDROCHLORIDE
     Indication: DEPRESSION
     Dosage: 100 MG, QD
     Route: 048
  27. DOCETAXEL. [Suspect]
     Active Substance: DOCETAXEL
     Indication: BREAST CANCER
     Dosage: 108 MG, Q3W
     Route: 042
     Dates: start: 20170825, end: 20170825
  28. TRASTUZUMAB. [Suspect]
     Active Substance: TRASTUZUMAB
     Dosage: 483 MG, Q3W
     Route: 042
     Dates: start: 20170915, end: 20180209
  29. FERROUS SULPHATE [FERROUS SULFATE] [Concomitant]
     Active Substance: FERROUS SULFATE
     Indication: ANAEMIA
     Dosage: 200 MG, QD
     Route: 048

REACTIONS (5)
  - Cough [Recovered/Resolved]
  - Dyspnoea [Recovered/Resolved]
  - Dyspnoea [Recovered/Resolved]
  - COVID-19 [Recovered/Resolved]
  - Lower respiratory tract infection [Recovered/Resolved]

NARRATIVE: CASE EVENT DATE: 20200121
